FAERS Safety Report 8102868-4 (Version None)
Quarter: 2012Q1

REPORT INFORMATION
  Report Type: 
  Country: None (occurrence: None)
  Receive Date: 20120201
  Receipt Date: 20120124
  Transmission Date: 20120608
  Serious: Yes (Death, Hospitalization, Other)
  Sender: FDA-Public Use
  Company Number: US-SANOFI-AVENTIS-A03200607586

PATIENT
  Age: 74 Year
  Sex: Male

DRUGS (33)
  1. ASPIRIN [Suspect]
     Indication: STENT PLACEMENT
     Route: 048
     Dates: start: 20021101
  2. TOPROL-XL [Concomitant]
  3. BEXTRA [Concomitant]
  4. SKELAXIN [Concomitant]
  5. HYTRIN [Concomitant]
     Route: 048
     Dates: start: 20020530
  6. CLOPIDOGREL BISULFATE [Suspect]
     Route: 048
     Dates: start: 20030702
  7. ZOCOR [Concomitant]
  8. LASIX [Concomitant]
  9. CELEBREX [Concomitant]
  10. PROCARDIA [Concomitant]
  11. VITAMIN TAB [Concomitant]
  12. XALATAN [Concomitant]
  13. CLOPIDOGREL BISULFATE [Suspect]
     Dosage: UNIT DOSE: 75 MG
     Route: 048
     Dates: start: 20021101
  14. CLOPIDOGREL BISULFATE [Suspect]
     Indication: STENT PLACEMENT
     Dosage: UNIT DOSE: 75 MG
     Route: 048
     Dates: start: 20021101
  15. ASPIRIN [Suspect]
     Route: 048
     Dates: start: 20021101
  16. TERAZOSIN HCL [Concomitant]
  17. PILOCARPINE [Concomitant]
  18. CLOPIDOGREL BISULFATE [Suspect]
     Route: 048
     Dates: start: 20030701, end: 20030701
  19. CLOPIDOGREL BISULFATE [Suspect]
     Route: 048
     Dates: start: 20030702
  20. TIMOPTIC [Concomitant]
  21. METHYLPREDNISOLONE [Concomitant]
  22. LANOXIN [Concomitant]
  23. LOTREL [Concomitant]
  24. NORVASC [Concomitant]
  25. NITROGLYCERIN [Concomitant]
  26. CLOPIDOGREL BISULFATE [Suspect]
     Route: 048
     Dates: start: 20030701, end: 20030701
  27. ASPIRIN [Suspect]
  28. ASPIRIN [Suspect]
  29. PREVACID [Concomitant]
  30. DIGOXIN [Concomitant]
  31. COZAAR [Concomitant]
  32. INFLUENZA VACCINE [Concomitant]
     Dates: start: 20031016, end: 20031016
  33. VITAMIN E [Concomitant]

REACTIONS (19)
  - CHOLELITHIASIS [None]
  - BRAIN INJURY [None]
  - POSTURING [None]
  - COUGH [None]
  - SUBDURAL HAEMATOMA [None]
  - RESPIRATORY FAILURE [None]
  - GASTRITIS [None]
  - ARTHRALGIA [None]
  - CORONARY ARTERY OCCLUSION [None]
  - BACK PAIN [None]
  - CHOLECYSTITIS ACUTE [None]
  - RENAL CYST [None]
  - MYOCARDIAL INFARCTION [None]
  - BRAIN STEM SYNDROME [None]
  - COMA [None]
  - BILIARY COLIC [None]
  - RENAL PAIN [None]
  - TESTICULAR PAIN [None]
  - BRAIN HERNIATION [None]
